FAERS Safety Report 9034556 (Version 1)
Quarter: 2013Q1

REPORT INFORMATION
  Report Type: Spontaneous
  Country: US (occurrence: None)
  Receive Date: 20130116
  Receipt Date: 20130116
  Transmission Date: 20140127
  Serious: Yes (Death, Hospitalization)
  Sender: FDA-Public Use
  Company Number: None

PATIENT
  Age: 76 Year
  Sex: Male

DRUGS (1)
  1. AZITHROMYCIN [Suspect]
     Indication: CHRONIC OBSTRUCTIVE PULMONARY DISEASE
     Dates: start: 20120621, end: 20120627

REACTIONS (12)
  - Rash [None]
  - Dizziness [None]
  - Abdominal pain [None]
  - Aspartate aminotransferase increased [None]
  - Alanine aminotransferase increased [None]
  - International normalised ratio increased [None]
  - Blood bilirubin increased [None]
  - Hypotension [None]
  - Metabolic acidosis [None]
  - Dermatitis [None]
  - Hepatic failure [None]
  - Eosinophil count abnormal [None]
